FAERS Safety Report 8795372 (Version 1)
Quarter: 2012Q4

REPORT INFORMATION
  Report Type: 
  Country: US (occurrence: US)
  Receive Date: 20120917
  Receipt Date: 20120917
  Transmission Date: 20130627
  Serious: Yes (Other)
  Sender: FDA-Public Use
  Company Number: US-MPIJNJ-2012-06320

PATIENT
  Sex: Female

DRUGS (7)
  1. VELCADE [Suspect]
     Indication: MULTIPLE MYELOMA
  2. THALOMID [Suspect]
     Indication: MULTIPLE MYELOMA
     Dosage: 50 mg, qd
     Route: 048
     Dates: start: 20120703
  3. THALOMID [Suspect]
     Dosage: 50 mg, Cyclic
     Route: 048
     Dates: start: 20100504, end: 20111216
  4. THALOMID [Suspect]
     Dosage: 50 mg, qd
     Route: 048
     Dates: start: 20120301, end: 20120423
  5. REVLIMID [Suspect]
     Indication: MULTIPLE MYELOMA
     Dosage: 10 mg, 3/week
     Route: 048
     Dates: start: 201202
  6. REVLIMID [Suspect]
     Dosage: 25 mg, Cyclic
     Route: 048
     Dates: start: 20071116, end: 200906
  7. DEXAMETHASONE [Suspect]
     Indication: MULTIPLE MYELOMA
     Dosage: UNK
     Route: 048

REACTIONS (6)
  - Bone lesion [Unknown]
  - Skin exfoliation [Unknown]
  - Erythema [Unknown]
  - Pruritus [Unknown]
  - Muscle spasms [Unknown]
  - Neuropathy peripheral [Unknown]
